FAERS Safety Report 14587729 (Version 3)
Quarter: 2018Q3

REPORT INFORMATION
  Report Type: Spontaneous
  Country: US (occurrence: US)
  Receive Date: 20180301
  Receipt Date: 20180905
  Transmission Date: 20181010
  Serious: Yes (Hospitalization)
  Sender: FDA-Public Use
  Company Number: US-PFIZER INC-2018083248

PATIENT
  Age: 65 Year
  Sex: Female

DRUGS (1)
  1. SUTENT [Suspect]
     Active Substance: SUNITINIB MALATE
     Indication: RENAL CANCER
     Dosage: 37.5 MG, CYCLIC (25 MG+12.5 MG CAPSULES BY MOUTH EVERY DAY FOR 28 DAYS OF 42?DAY CYCLE)
     Route: 048
     Dates: start: 201404

REACTIONS (2)
  - Pain in extremity [Recovering/Resolving]
  - Sciatica [Unknown]
